FAERS Safety Report 9359283 (Version 1)
Quarter: 2013Q2

REPORT INFORMATION
  Report Type: Spontaneous
  Country: US (occurrence: US)
  Receive Date: 20130620
  Receipt Date: 20130620
  Transmission Date: 20140414
  Serious: No
  Sender: FDA-Public Use
  Company Number: US-PFIZER INC-2013182907

PATIENT
  Age: 21 Year
  Sex: Male
  Weight: 90.7 kg

DRUGS (2)
  1. EFFEXOR XR [Suspect]
     Indication: ANXIETY
     Dosage: 300 MG, 1X/DAY
     Route: 048
  2. FISH OIL [Concomitant]
     Dosage: UNK

REACTIONS (12)
  - Insomnia [Unknown]
  - Fatigue [Unknown]
  - Anxiety [Unknown]
  - Headache [Unknown]
  - Gastric disorder [Unknown]
  - Eye disorder [Unknown]
  - Eye pain [Unknown]
  - Depression [Unknown]
  - Thinking abnormal [Unknown]
  - Anger [Unknown]
  - Aggression [Unknown]
  - Drug withdrawal syndrome [Unknown]
